FAERS Safety Report 25326413 (Version 1)
Quarter: 2025Q2

REPORT INFORMATION
  Report Type: Spontaneous
  Country: RO (occurrence: RO)
  Receive Date: 20250516
  Receipt Date: 20250516
  Transmission Date: 20250717
  Serious: Yes (Other)
  Sender: ALEXION PHARMACEUTICALS
  Company Number: RO-AstraZeneca-CH-00869951A

PATIENT
  Weight: 85 kg

DRUGS (4)
  1. CALQUENCE [Suspect]
     Active Substance: ACALABRUTINIB
     Indication: Chronic lymphocytic leukaemia
     Dosage: 100 MILLIGRAM, BID
  2. FERRITIN [Concomitant]
     Active Substance: FERRITIN
     Route: 065
  3. INDAPAMIDE [Concomitant]
     Active Substance: INDAPAMIDE
     Route: 065
  4. METFORMIN [Concomitant]
     Active Substance: METFORMIN HYDROCHLORIDE
     Route: 065

REACTIONS (6)
  - Folate deficiency [Recovered/Resolved]
  - Iron deficiency [Recovered/Resolved]
  - Cardiac failure [Unknown]
  - Ischaemic cardiomyopathy [Unknown]
  - Anaemia [Unknown]
  - Thrombocytopenia [Unknown]
